FAERS Safety Report 10612034 (Version 2)
Quarter: 2014Q4

REPORT INFORMATION
  Report Type: Report from Study
  Country: PL (occurrence: PL)
  Receive Date: 20141126
  Receipt Date: 20141126
  Transmission Date: 20150529
  Serious: Yes (Hospitalization)
  Sender: FDA-Public Use
  Company Number: PL-ROCHE-1084287

PATIENT
  Age: 48 Year
  Sex: Female
  Weight: 60 kg

DRUGS (5)
  1. BIOFER FOLIC [Concomitant]
     Indication: PROPHYLAXIS
     Route: 065
     Dates: start: 20120215, end: 20130718
  2. BLINDED PERTUZUMAB [Suspect]
     Active Substance: PERTUZUMAB
     Indication: HER-2 POSITIVE BREAST CANCER
     Dosage: LAST DOSE PRIOR TO EVENT: 04/JUL/2012. DOSE HELD DUE TO ENDOMETRIAL HYPERTROPHY.
     Route: 042
     Dates: start: 20110920, end: 20110920
  3. ASPARGIN [Concomitant]
     Active Substance: ASPARTIC ACID
     Route: 065
     Dates: start: 20111221
  4. TRASTUZUMAB EMTANSINE [Suspect]
     Active Substance: ADO-TRASTUZUMAB EMTANSINE
     Indication: HER-2 POSITIVE BREAST CANCER
     Dosage: LAST DOSE PRIOR TO EVENT: 04/JUL/2012: 216 MG. DOSE HELD DUE TO ENDOMETRIAL HYPERTROPHY. LAST DOSE T
     Route: 042
     Dates: start: 20110920, end: 20120704
  5. BLINDED PERTUZUMAB [Suspect]
     Active Substance: PERTUZUMAB
     Route: 042
     Dates: start: 20111011

REACTIONS (2)
  - Anaemia [Recovered/Resolved]
  - Endometrial hypertrophy [Recovered/Resolved]

NARRATIVE: CASE EVENT DATE: 20120620
